FAERS Safety Report 7995177-5 (Version None)
Quarter: 2011Q4

REPORT INFORMATION
  Report Type: 
  Country: None (occurrence: None)
  Receive Date: 20111220
  Receipt Date: 20111208
  Transmission Date: 20120403
  Serious: Yes (Life-Threatening, Hospitalization)
  Sender: FDA-Public Use
  Company Number: DE-GLAXOSMITHKLINE-B0769858A

PATIENT
  Sex: Male

DRUGS (3)
  1. PAZOPANIB [Suspect]
     Indication: BLADDER NEOPLASM
     Dosage: 200MG PER DAY
     Route: 048
     Dates: start: 20110528, end: 20110602
  2. MARCUMAR [Concomitant]
     Indication: THROMBOSIS
     Dosage: 1TAB PER DAY
     Route: 065
     Dates: start: 20110529
  3. STUDY MEDICATION [Suspect]
     Indication: BLADDER NEOPLASM
     Dosage: 568MG EVERY 3 WEEKS
     Route: 042
     Dates: start: 20110527, end: 20110602

REACTIONS (1)
  - LEUKOPENIA [None]
